FAERS Safety Report 25348610 (Version 1)
Quarter: 2025Q2

REPORT INFORMATION
  Report Type: Spontaneous
  Country: US (occurrence: None)
  Receive Date: 20250522
  Receipt Date: 20250522
  Transmission Date: 20250716
  Serious: Yes (Death)
  Sender: FDA-CTU
  Company Number: None

PATIENT
  Age: 58 Year
  Sex: Female
  Weight: 49 kg

DRUGS (18)
  1. PREZCOBIX [Suspect]
     Active Substance: COBICISTAT\DARUNAVIR ETHANOLATE
     Indication: HIV infection
     Dosage: FREQUENCY : DAILY;?STRENGTH: 800MG-150MG MG
     Route: 048
  2. ISENTRESS [Suspect]
     Active Substance: RALTEGRAVIR POTASSIUM
     Indication: HIV infection
     Dosage: FREQUENCY : TWICE A DAY;?
     Route: 048
  3. Edurant 25 mg [Concomitant]
  4. ALENDRONATE SODIUM [Concomitant]
     Active Substance: ALENDRONATE SODIUM
  5. AMLODIPINE BESYLATE [Concomitant]
     Active Substance: AMLODIPINE BESYLATE
  6. ASPIRIN [Concomitant]
     Active Substance: ASPIRIN
  7. Butalbital/Acetaminophen/Caffeine 50-325-40 [Concomitant]
     Dates: start: 20250426
  8. CALCITRIOL [Concomitant]
     Active Substance: CALCITRIOL
  9. FAMOTIDINE [Concomitant]
     Active Substance: FAMOTIDINE
  10. FLUCONAZOLE [Concomitant]
     Active Substance: FLUCONAZOLE
  11. Folic Acid 1 mg [Concomitant]
  12. Metoprolol ER Succinate 100 mg [Concomitant]
     Dates: end: 20250130
  13. Metoprolol ER Succinate 50 mg [Concomitant]
     Dates: start: 20250204
  14. MIRTAZAPINE [Concomitant]
     Active Substance: MIRTAZAPINE
  15. Oseltamivir 30 mg [Concomitant]
     Dates: start: 20250226, end: 20250226
  16. ROSUVASTATIN [Concomitant]
     Active Substance: ROSUVASTATIN
  17. SEVELAMER CARBONATE [Concomitant]
     Active Substance: SEVELAMER CARBONATE
  18. VENTOLIN HFA [Concomitant]
     Active Substance: ALBUTEROL SULFATE
     Dates: start: 20250305

REACTIONS (1)
  - Death [None]

NARRATIVE: CASE EVENT DATE: 20250515
